FAERS Safety Report 17015612 (Version 1)
Quarter: 2019Q4

REPORT INFORMATION
  Report Type: Spontaneous
  Country: US (occurrence: US)
  Receive Date: 20191003
  Receipt Date: 20191003
  Transmission Date: 20200122
  Serious: No
  Sender: FDA-Public Use
  Company Number: None

PATIENT
  Age: 33 Year
  Sex: Female
  Weight: 79.4 kg

DRUGS (1)
  1. MESALAMINE 1.2G [Suspect]
     Active Substance: MESALAMINE
     Indication: COLITIS
     Route: 048
     Dates: start: 20190703, end: 20190908

REACTIONS (3)
  - Abdominal pain [None]
  - Defaecation urgency [None]
  - Product substitution issue [None]

NARRATIVE: CASE EVENT DATE: 20190908
